FAERS Safety Report 9444476 (Version 3)
Quarter: 2013Q4

REPORT INFORMATION
  Report Type: Spontaneous
  Country: US (occurrence: US)
  Receive Date: 20130807
  Receipt Date: 20131120
  Transmission Date: 20140711
  Serious: Yes (Other)
  Sender: FDA-Public Use
  Company Number: US-BAYER-2013-094110

PATIENT
  Age: 43 Year
  Sex: Female
  Weight: 136.5 kg

DRUGS (1)
  1. MIRENA [Suspect]
     Indication: CONTRACEPTION
     Dosage: 20 MCG/24HR, CONT
     Route: 015
     Dates: start: 20060922, end: 20111013

REACTIONS (8)
  - Embedded device [None]
  - Uterine leiomyoma [None]
  - Device related infection [None]
  - Medication error [None]
  - Uterine adhesions [None]
  - Injury [None]
  - Pain [None]
  - Emotional distress [None]
